FAERS Safety Report 22304778 (Version 1)
Quarter: 2023Q2

REPORT INFORMATION
  Report Type: Spontaneous
  Country: US (occurrence: None)
  Receive Date: 20230509
  Receipt Date: 20230509
  Transmission Date: 20230721
  Serious: Yes (unspecified)
  Sender: FDA-Public Use
  Company Number: None

PATIENT
  Age: 43 Year
  Sex: Male
  Weight: 70 kg

DRUGS (1)
  1. ALAWAY [Suspect]
     Active Substance: KETOTIFEN FUMARATE
     Indication: Hypersensitivity
     Dosage: FREQUENCY : TWICE A DAY;?
     Route: 047

REACTIONS (5)
  - Dry eye [None]
  - Ocular hyperaemia [None]
  - Vitreous floaters [None]
  - Eye inflammation [None]
  - Vitreous detachment [None]

NARRATIVE: CASE EVENT DATE: 20220618
